FAERS Safety Report 5391830-0 (Version None)
Quarter: 2007Q3

REPORT INFORMATION
  Report Type: 
  Country: None (occurrence: None)
  Receive Date: 20070718
  Receipt Date: 20070711
  Transmission Date: 20080115
  Serious: Yes (Other)
  Sender: FDA-Public Use
  Company Number: 2007S1000171

PATIENT
  Age: 3 Year
  Sex: Male

DRUGS (1)
  1. OLUX [Suspect]
     Indication: DERMATITIS ATOPIC
     Dosage: 0.5 PCT;BID;TOP
     Route: 061
     Dates: start: 20070613

REACTIONS (3)
  - ACCIDENTAL DRUG INTAKE BY CHILD [None]
  - OFF LABEL USE [None]
  - VOMITING [None]
